FAERS Safety Report 5335129-7 (Version None)
Quarter: 2007Q2

REPORT INFORMATION
  Report Type: 
  Country: None (occurrence: None)
  Receive Date: 20070525
  Receipt Date: 20070515
  Transmission Date: 20071010
  Serious: Yes (Hospitalization, Other)
  Sender: FDA-Public Use
  Company Number: JP-ABBOTT-98P-087-0062782-00

PATIENT
  Age: 4 Year
  Sex: Female

DRUGS (8)
  1. DEPAKENE [Suspect]
     Indication: EPILEPSY
  2. DEPAKENE [Suspect]
  3. DEPAKENE [Suspect]
  4. DEPAKENE [Suspect]
  5. DEPAKENE [Suspect]
  6. PANIPENEM-BETAMIPRON [Interacting]
     Indication: PNEUMONIA
  7. PHENOBARBITAL TAB [Concomitant]
     Indication: EPILEPSY
  8. PHENOBARBITAL TAB [Concomitant]

REACTIONS (3)
  - DRUG INTERACTION [None]
  - DRUG LEVEL DECREASED [None]
  - PNEUMONIA [None]
